FAERS Safety Report 17692358 (Version 1)
Quarter: 2020Q2

REPORT INFORMATION
  Report Type: Spontaneous
  Country: TW (occurrence: TW)
  Receive Date: 20200422
  Receipt Date: 20200422
  Transmission Date: 20200714
  Serious: Yes (Congenital Anomaly, Other)
  Sender: FDA-Public Use
  Company Number: TW-VISTAPHARM, INC.-VER202004-000825

PATIENT
  Age: 38 Week
  Sex: Male
  Weight: 3.18 kg

DRUGS (2)
  1. METHADONE [Suspect]
     Active Substance: METHADONE HYDROCHLORIDE
     Dosage: UNKNOWN
     Route: 064
  2. HEROIN [Suspect]
     Active Substance: DIAMORPHINE
     Dosage: UNKNOWN
     Route: 064

REACTIONS (6)
  - Drug withdrawal syndrome neonatal [Not Recovered/Not Resolved]
  - Hypertonia [Not Recovered/Not Resolved]
  - Inappropriate affect [Not Recovered/Not Resolved]
  - Developmental delay [Not Recovered/Not Resolved]
  - Cerebral disorder [Not Recovered/Not Resolved]
  - Foetal exposure during pregnancy [Unknown]
